FAERS Safety Report 7888004-8 (Version None)
Quarter: 2011Q4

REPORT INFORMATION
  Report Type: 
  Country: None (occurrence: None)
  Receive Date: 20111103
  Receipt Date: 20111026
  Transmission Date: 20120403
  Serious: Yes (Other)
  Sender: FDA-Public Use
  Company Number: US-JNJFOC-20111011652

PATIENT
  Sex: Female
  Weight: 75.75 kg

DRUGS (5)
  1. REMICADE [Suspect]
     Route: 042
     Dates: start: 20090101
  2. METHYLDOPA [Concomitant]
     Indication: BLOOD PRESSURE
     Route: 048
     Dates: start: 20090101
  3. AVAPRO [Concomitant]
     Indication: BLOOD PRESSURE
     Route: 048
     Dates: start: 20090101
  4. REMICADE [Suspect]
     Indication: PSORIATIC ARTHROPATHY
     Route: 042
  5. DILTIAZEM HCL [Concomitant]
     Indication: BLOOD PRESSURE
     Route: 048
     Dates: start: 20090101

REACTIONS (4)
  - COUGH [None]
  - PSORIATIC ARTHROPATHY [None]
  - INTERSTITIAL LUNG DISEASE [None]
  - THERAPEUTIC RESPONSE DECREASED [None]
